FAERS Safety Report 8275233-7 (Version None)
Quarter: 2012Q2

REPORT INFORMATION
  Report Type: 
  Country: None (occurrence: None)
  Receive Date: 20120411
  Receipt Date: 20120404
  Transmission Date: 20120825
  Serious: Yes (Life-Threatening, Other)
  Sender: FDA-Public Use
  Company Number: ES-ROXANE LABORATORIES, INC.-2012-RO-00988RO

PATIENT
  Age: 60 Year
  Sex: Male

DRUGS (8)
  1. LITHIUM CARBONATE [Suspect]
     Indication: BIPOLAR DISORDER
     Dosage: 1000 MG
     Dates: start: 19920101
  2. RHAMNUS PURSHIANA [Suspect]
     Indication: ANAL FISTULA
     Dates: start: 20030101
  3. SIMVASTATIN [Suspect]
     Indication: CARDIAC DISORDER
     Dosage: 10 MG
     Dates: start: 20011101
  4. ACETYLSALICYLIC ACID SRT [Suspect]
     Indication: CARDIAC DISORDER
     Dosage: 100 MG
     Dates: start: 20011101
  5. BISOPROLOL [Suspect]
     Indication: CARDIAC DISORDER
     Dosage: 2.5 MG
     Dates: start: 20011101
  6. FUCUS VESICULOSUS [Suspect]
     Indication: ANAL FISTULA
     Dates: start: 20030101, end: 20080401
  7. RAMIPRIL [Suspect]
     Indication: CARDIAC DISORDER
     Dosage: 2.5 MG
     Dates: start: 20011101
  8. FRANGULA [Suspect]
     Indication: ANAL FISTULA
     Dates: start: 20030101

REACTIONS (3)
  - ACUTE MYOCARDIAL INFARCTION [None]
  - HYPERTHYROIDISM [None]
  - HYPOTHYROIDISM [None]
